FAERS Safety Report 7543349-6 (Version None)
Quarter: 2011Q2

REPORT INFORMATION
  Report Type: 
  Country: None (occurrence: None)
  Receive Date: 20110613
  Receipt Date: 20110602
  Transmission Date: 20111010
  Serious: Yes (Hospitalization, Other)
  Sender: FDA-Public Use
  Company Number: US-BAXTER-2011BH016511

PATIENT
  Sex: Female

DRUGS (6)
  1. DIANEAL [Suspect]
     Indication: PERITONEAL DIALYSIS
     Route: 033
     Dates: end: 20110401
  2. DIANEAL [Suspect]
     Route: 033
     Dates: start: 20110101, end: 20110501
  3. DIANEAL [Suspect]
     Route: 033
     Dates: start: 20110101
  4. DIANEAL [Suspect]
     Route: 033
     Dates: start: 20110101
  5. DIANEAL [Suspect]
     Indication: PERITONEAL DIALYSIS
     Route: 033
     Dates: end: 20110401
  6. DIANEAL [Suspect]
     Route: 033
     Dates: start: 20110101, end: 20110501

REACTIONS (3)
  - RECTAL PROLAPSE [None]
  - HAEMOGLOBIN DECREASED [None]
  - HAEMORRHAGE [None]
